FAERS Safety Report 25384851 (Version 3)
Quarter: 2025Q3

REPORT INFORMATION
  Report Type: Spontaneous
  Country: CN (occurrence: CN)
  Receive Date: 20250602
  Receipt Date: 20250910
  Transmission Date: 20251021
  Serious: Yes (Death, Hospitalization, Other)
  Sender: ROCHE
  Company Number: CN-ROCHE-10000295796

PATIENT
  Age: 71 Year
  Sex: Male

DRUGS (1)
  1. TECENTRIQ [Suspect]
     Active Substance: ATEZOLIZUMAB
     Indication: Lung neoplasm malignant
     Route: 065
     Dates: start: 202409

REACTIONS (55)
  - Neuropathy peripheral [Unknown]
  - Pneumonia [Fatal]
  - Discomfort [Unknown]
  - Dizziness [Unknown]
  - General physical health deterioration [Unknown]
  - Immobile [Unknown]
  - Bedridden [Unknown]
  - Septic shock [Recovering/Resolving]
  - Pyrexia [Unknown]
  - Pleural effusion [Unknown]
  - Muscular weakness [Unknown]
  - Adrenal neoplasm [Unknown]
  - Cerebral disorder [Unknown]
  - Autoimmune encephalopathy [Unknown]
  - Sjogren^s syndrome [Unknown]
  - Anxiety [Unknown]
  - Depression [Unknown]
  - Hypotension [Unknown]
  - Multiple organ dysfunction syndrome [Fatal]
  - Chronic kidney disease [Unknown]
  - Hypoproteinaemia [Unknown]
  - Malnutrition [Unknown]
  - Marasmus [Unknown]
  - Hyponatraemia [Unknown]
  - Lacunar infarction [Unknown]
  - Intervertebral disc protrusion [Unknown]
  - Intervertebral disc protrusion [Unknown]
  - Anaemia [Unknown]
  - Arteriosclerosis [Unknown]
  - Lymphadenopathy [Unknown]
  - Bronchitis chronic [Unknown]
  - Emphysema [Unknown]
  - Adrenal mass [Unknown]
  - Lymphadenopathy [Unknown]
  - Atelectasis [Unknown]
  - Pleural thickening [Unknown]
  - White matter lesion [Unknown]
  - Cerebral atrophy [Unknown]
  - Intervertebral disc degeneration [Unknown]
  - Intervertebral disc protrusion [Unknown]
  - Cyst [Unknown]
  - Lacunar infarction [Unknown]
  - Cerebral disorder [Unknown]
  - Arachnoid cyst [Unknown]
  - Carotid arteriosclerosis [Unknown]
  - Tricuspid valve incompetence [Unknown]
  - Peripheral arterial occlusive disease [Unknown]
  - Ulnar nerve injury [Unknown]
  - Peripheral nerve injury [Unknown]
  - Red blood cell count decreased [Unknown]
  - Deep vein thrombosis [Unknown]
  - Renal disorder [Unknown]
  - Spinal osteoarthritis [Unknown]
  - Peripheral vein thrombosis [Unknown]
  - Pleural calcification [Unknown]

NARRATIVE: CASE EVENT DATE: 20250310
